FAERS Safety Report 9781922 (Version 1)
Quarter: 2013Q4

REPORT INFORMATION
  Report Type: Spontaneous
  Country: US (occurrence: US)
  Receive Date: 20131225
  Receipt Date: 20131225
  Transmission Date: 20140711
  Serious: No
  Sender: FDA-Public Use
  Company Number: US-B.I. PHARMACEUTICALS,INC./RIDGEFIELD-2013-BI-42056BP

PATIENT
  Age: 95 Year
  Sex: Female
  Weight: 96 kg

DRUGS (6)
  1. PRADAXA [Suspect]
     Indication: ATRIAL FIBRILLATION
     Dosage: 300 MG
     Route: 048
     Dates: start: 20131114
  2. VITAMIN D [Concomitant]
     Dosage: 2000 MG
     Route: 048
  3. LEVOTHYROXINE [Concomitant]
     Indication: HYPOTHYROIDISM
     Dosage: 75 MCG
     Route: 048
  4. MELATONIN [Concomitant]
     Route: 048
     Dates: start: 20131129, end: 20131209
  5. KLOR CON [Concomitant]
     Indication: MINERAL SUPPLEMENTATION
     Dosage: 10 MEQ
     Route: 048
  6. FUROSEMIDE [Concomitant]
     Indication: FLUID RETENTION
     Dosage: 40 MG
     Route: 048

REACTIONS (3)
  - Rash generalised [Not Recovered/Not Resolved]
  - Oedema [Not Recovered/Not Resolved]
  - Joint swelling [Not Recovered/Not Resolved]
